FAERS Safety Report 13556347 (Version 1)
Quarter: 2017Q2

REPORT INFORMATION
  Report Type: Spontaneous
  Country: US (occurrence: US)
  Receive Date: 20170517
  Receipt Date: 20170517
  Transmission Date: 20170830
  Serious: No
  Sender: FDA-Public Use
  Company Number: US-SA-2017SA027472

PATIENT
  Age: 69 Year
  Sex: Female

DRUGS (3)
  1. TOUJEO [Suspect]
     Active Substance: INSULIN GLARGINE
     Indication: TYPE 2 DIABETES MELLITUS
     Dosage: TAKING 29 UNITS IN THE MORNING AND 13 UNITS LATER IN THE DAY
     Route: 065
     Dates: start: 20170111
  2. TOUJEO [Suspect]
     Active Substance: INSULIN GLARGINE
     Indication: TYPE 2 DIABETES MELLITUS
     Dosage: TAKING 29 UNITS IN THE MORNING AND 13 UNITS LATER IN THE DAY
     Route: 065
     Dates: start: 20170111
  3. SOLOSTAR [Concomitant]
     Active Substance: DEVICE
     Dates: start: 20170101

REACTIONS (1)
  - Product use issue [Unknown]

NARRATIVE: CASE EVENT DATE: 20170111
